APPROVED DRUG PRODUCT: KANAMYCIN SULFATE
Active Ingredient: KANAMYCIN SULFATE
Strength: EQ 75MG BASE/2ML
Dosage Form/Route: INJECTABLE;INJECTION
Application: A062605 | Product #003
Applicant: SOLOPAK LABORATORIES INC
Approved: Feb 26, 1986 | RLD: No | RS: No | Type: DISCN